FAERS Safety Report 6085747-6 (Version None)
Quarter: 2009Q1

REPORT INFORMATION
  Report Type: 
  Country: None (occurrence: None)
  Receive Date: 20090220
  Receipt Date: 20090218
  Transmission Date: 20090719
  Serious: Yes (Life-Threatening, Hospitalization, Disabling)
  Sender: FDA-Public Use
  Company Number: HU-SANOFI-SYNTHELABO-D01200901286

PATIENT
  Sex: Male
  Weight: 94 kg

DRUGS (4)
  1. SR57746 OR PLACEBO [Suspect]
     Route: 048
     Dates: start: 20080428, end: 20090216
  2. LEUCOVORIN CALCIUM [Suspect]
     Route: 042
     Dates: start: 20090130, end: 20090130
  3. FLUOROURACIL [Suspect]
     Dosage: 400 MG/M?, IV BOLUS D1+D2 FOLLOWED BY 5-FU 2400 MG/M? OVER 46-HOUR CONTINUOUS INFUSION.
     Route: 042
     Dates: start: 20090130, end: 20090130
  4. OXALIPLATIN [Suspect]
     Route: 042
     Dates: start: 20081203, end: 20081203

REACTIONS (1)
  - PYELONEPHRITIS [None]
